FAERS Safety Report 19766621 (Version 2)
Quarter: 2021Q3

REPORT INFORMATION
  Report Type: Report from Study
  Country: CH (occurrence: CH)
  Receive Date: 20210830
  Receipt Date: 20210907
  Transmission Date: 20211014
  Serious: Yes (Death)
  Sender: FDA-Public Use
  Company Number: CH-TAKEDA-2021TUS052281

PATIENT
  Age: 60 Year
  Sex: Male

DRUGS (1)
  1. CUVITRU [Suspect]
     Active Substance: HUMAN IMMUNOGLOBULIN G
     Indication: SECONDARY IMMUNODEFICIENCY
     Dosage: 15 GRAM, 1/WEEK
     Route: 058
     Dates: start: 20210205

REACTIONS (1)
  - Pre-existing disease [Fatal]
